FAERS Safety Report 13283614 (Version 2)
Quarter: 2017Q1

REPORT INFORMATION
  Report Type: Spontaneous
  Country: FR (occurrence: FR)
  Receive Date: 20170301
  Receipt Date: 20170306
  Transmission Date: 20170428
  Serious: Yes (Death, Other)
  Sender: FDA-Public Use
  Company Number: FR-009507513-1702FRA011414

PATIENT
  Age: 85 Year
  Sex: Female

DRUGS (5)
  1. AMOXICILLIN (+) CLAVULANATE POTASSIUM [Interacting]
     Active Substance: AMOXICILLIN\CLAVULANATE POTASSIUM
     Indication: CARDIAC FAILURE
  2. PREVISCAN [Interacting]
     Active Substance: FLUINDIONE
     Indication: ARRHYTHMIA
     Dosage: 10 MG (0.5 DF), ONCE DAILY
     Route: 048
     Dates: end: 20170206
  3. AMOXICILLIN (+) CLAVULANATE POTASSIUM [Interacting]
     Active Substance: AMOXICILLIN\CLAVULANATE POTASSIUM
     Indication: ERYSIPELAS
     Dosage: 500 MG, BID
     Route: 042
     Dates: start: 20170203
  4. FIDAXOMICIN [Suspect]
     Active Substance: FIDAXOMICIN
     Indication: CLOSTRIDIUM DIFFICILE COLITIS
     Dosage: 200 MG, BID
     Route: 048
     Dates: start: 20170203
  5. AMOXICILLIN (+) CLAVULANATE POTASSIUM [Interacting]
     Active Substance: AMOXICILLIN\CLAVULANATE POTASSIUM
     Indication: ACUTE CORONARY SYNDROME

REACTIONS (5)
  - Activated partial thromboplastin time prolonged [Unknown]
  - Cardiac failure [Fatal]
  - International normalised ratio increased [Unknown]
  - Melaena [Unknown]
  - Drug interaction [Unknown]

NARRATIVE: CASE EVENT DATE: 20170207
